FAERS Safety Report 24313635 (Version 1)
Quarter: 2024Q3

REPORT INFORMATION
  Report Type: Report from Study
  Country: US (occurrence: US)
  Receive Date: 20240912
  Receipt Date: 20240912
  Transmission Date: 20241017
  Serious: Yes (Life-Threatening, Other)
  Sender: PFIZER
  Company Number: US-PFIZER INC-202400254952

PATIENT

DRUGS (1)
  1. MEPIVACAINE HYDROCHLORIDE [Suspect]
     Active Substance: MEPIVACAINE HYDROCHLORIDE
     Dosage: 200 MG
     Route: 064

REACTIONS (3)
  - Foetal exposure during delivery [Unknown]
  - Bradycardia foetal [Unknown]
  - Drug level increased [Unknown]
